FAERS Safety Report 4816822-9 (Version None)
Quarter: 2005Q4

REPORT INFORMATION
  Report Type: 
  Country: None (occurrence: None)
  Receive Date: 20051101
  Receipt Date: 20051004
  Transmission Date: 20060501
  Serious: Yes (Death, Other)
  Sender: FDA-Public Use
  Company Number: MY-BOEHRINGER INGELHEIM PHARMACEUTICALS, INC.-2005-BP-17677SG

PATIENT
  Age: 64 Year
  Sex: Male

DRUGS (6)
  1. TIOTROPIUM INH. POWDER [Suspect]
     Route: 055
  2. NUELIN SR (THEOPHYLLIN) [Concomitant]
  3. BAMBEC [Concomitant]
  4. APPROVEL (IRBESARTAN) [Concomitant]
  5. LASIX [Concomitant]
  6. BIOQUINONE [Concomitant]

REACTIONS (1)
  - LUNG NEOPLASM MALIGNANT [None]
